FAERS Safety Report 7801890-2 (Version None)
Quarter: 2011Q4

REPORT INFORMATION
  Report Type: 
  Country: None (occurrence: None)
  Receive Date: 20111005
  Receipt Date: 20110922
  Transmission Date: 20120403
  Serious: Yes (Death, Hospitalization)
  Sender: FDA-Public Use
  Company Number: LTI2011A00077

PATIENT
  Age: 62 Year
  Sex: Male

DRUGS (6)
  1. ATORVASTATIN CALCIUM [Concomitant]
  2. PERINDOPRIL ERBUMINE [Concomitant]
  3. DILTIAZEM HCL [Concomitant]
  4. PIOGLITAZONE HYDROCHLORIDE AND METFORMIN HYDROCHLORIDE [Suspect]
     Indication: TYPE 2 DIABETES MELLITUS
     Dosage: 2 TAB. (1 TAB., 2 IN 1 D), ORAL
     Route: 048
     Dates: start: 20080517, end: 20090722
  5. PIOGLITAZONE HYDROCHLORIDE AND METFORMIN HYDROCHLORIDE [Suspect]
     Indication: TYPE 2 DIABETES MELLITUS
     Dosage: 2 TAB. (1 TAB., 2 IN 1 D), ORAL
     Route: 048
     Dates: start: 20100108, end: 20110112
  6. ASPIRIN [Concomitant]

REACTIONS (2)
  - PULMONARY FIBROSIS [None]
  - LYMPHADENOPATHY MEDIASTINAL [None]
